FAERS Safety Report 9221775 (Version 2)
Quarter: 2013Q2

REPORT INFORMATION
  Report Type: Spontaneous
  Country: US (occurrence: US)
  Receive Date: 20130410
  Receipt Date: 20130627
  Transmission Date: 20140414
  Serious: Yes (Life-Threatening, Other)
  Sender: FDA-Public Use
  Company Number: US-JNJFOC-20130300732

PATIENT
  Age: 5 Year
  Sex: Female
  Weight: 21.77 kg

DRUGS (4)
  1. CHILDREN^S TYLENOL LIQUID CHERRY [Suspect]
     Indication: ALLERGY TEST
     Dosage: 160MG/5ML, 7.5 ML
     Route: 048
     Dates: start: 201301
  2. CHILDREN^S TYLENOL LIQUID CHERRY [Suspect]
     Indication: ALLERGY TEST
     Dosage: 160MG/5ML, 7.5ML
     Route: 048
     Dates: start: 20130227, end: 20130227
  3. CHILDREN^S TYLENOL LIQUID CHERRY [Suspect]
     Indication: PYREXIA
     Dosage: 160MG/5ML, 7.5 ML
     Route: 048
     Dates: start: 201301
  4. CHILDREN^S TYLENOL LIQUID CHERRY [Suspect]
     Indication: PYREXIA
     Dosage: 160MG/5ML, 7.5ML
     Route: 048
     Dates: start: 20130227, end: 20130227

REACTIONS (1)
  - Anaphylactic reaction [Recovered/Resolved]
